FAERS Safety Report 18842892 (Version 1)
Quarter: 2021Q1

REPORT INFORMATION
  Report Type: Spontaneous
  Country: GB (occurrence: GB)
  Receive Date: 20210203
  Receipt Date: 20210203
  Transmission Date: 20210419
  Serious: Yes (Hospitalization)
  Sender: FDA-Public Use
  Company Number: GB-TEVA-2021-GB-1872650

PATIENT
  Age: 95 Year
  Sex: Female
  Weight: 78.4 kg

DRUGS (10)
  1. CALCICHEW D3 [Concomitant]
     Active Substance: CALCIUM\CHOLECALCIFEROL
     Indication: ILL-DEFINED DISORDER
     Route: 065
  2. DIGOXIN. [Concomitant]
     Active Substance: DIGOXIN
     Indication: ILL-DEFINED DISORDER
     Route: 065
  3. BISOPROLOL FUMARATE. [Concomitant]
     Active Substance: BISOPROLOL FUMARATE
     Indication: ILL-DEFINED DISORDER
     Route: 065
  4. FERROUS FUMARATE [Concomitant]
     Active Substance: FERROUS FUMARATE
     Indication: ILL-DEFINED DISORDER
     Route: 065
  5. SENNA [Concomitant]
     Active Substance: SENNA LEAF\SENNOSIDES\SENNOSIDES A AND B
     Indication: ILL-DEFINED DISORDER
     Route: 065
  6. COCODAMOL [Concomitant]
     Active Substance: ACETAMINOPHEN\CODEINE PHOSPHATE
     Indication: ILL-DEFINED DISORDER
     Route: 065
  7. EDOXABAN MONOHYDRATE [Concomitant]
     Indication: ILL-DEFINED DISORDER
     Route: 065
  8. LACTULOSE. [Concomitant]
     Active Substance: LACTULOSE
     Indication: ILL-DEFINED DISORDER
     Route: 065
  9. FUROSEMIDE SODIUM [Concomitant]
     Active Substance: FUROSEMIDE SODIUM
     Indication: ILL-DEFINED DISORDER
     Route: 065
  10. TRIMETHOPRIM. [Suspect]
     Active Substance: TRIMETHOPRIM
     Indication: URINARY TRACT INFECTION
     Dosage: 200 MG
     Route: 048
     Dates: start: 20201211, end: 20201216

REACTIONS (2)
  - Acute kidney injury [Recovered/Resolved]
  - Medication error [Unknown]

NARRATIVE: CASE EVENT DATE: 20201215
